FAERS Safety Report 8044462-X (Version None)
Quarter: 2012Q1

REPORT INFORMATION
  Report Type: 
  Country: None (occurrence: None)
  Receive Date: 20120113
  Receipt Date: 20120110
  Transmission Date: 20120608
  Serious: Yes (Life-Threatening, Other)
  Sender: FDA-Public Use
  Company Number: JP-CELGENEUS-087-21880-11071532

PATIENT
  Sex: Male

DRUGS (15)
  1. ASPIRIN [Concomitant]
     Indication: PROPHYLAXIS
     Dosage: 100 MILLIGRAM
     Route: 048
     Dates: end: 20110208
  2. BAKTAR [Concomitant]
     Indication: PROPHYLAXIS
     Dosage: 1 TABLET
     Route: 048
     Dates: start: 20101129, end: 20110208
  3. LEVOFLOXACIN [Concomitant]
     Indication: PROPHYLAXIS
     Dosage: 800 MILLIGRAM
     Route: 048
     Dates: start: 20101207, end: 20110208
  4. REVLIMID [Suspect]
     Indication: MULTIPLE MYELOMA
     Dosage: 15 MILLIGRAM
     Route: 048
     Dates: start: 20110121, end: 20110125
  5. DEXAMETHASONE ACETATE [Suspect]
     Indication: REFRACTORY CANCER
  6. VALTREX [Concomitant]
     Indication: PROPHYLAXIS
     Dosage: 500 MILLIGRAM
     Route: 048
     Dates: end: 20110208
  7. FENTOS [Concomitant]
     Dosage: 4 MILLIGRAM
     Route: 062
     Dates: start: 20110120, end: 20110208
  8. SODIUM BICARBONATE [Concomitant]
     Indication: PROPHYLAXIS
     Dosage: 20 MILLILITER
     Route: 041
     Dates: start: 20110122, end: 20110131
  9. DEXAMETHASONE ACETATE [Suspect]
     Indication: MULTIPLE MYELOMA
     Dosage: 20 MILLIGRAM
     Route: 048
     Dates: start: 20110121, end: 20110121
  10. MAGNESIUM SULFATE [Concomitant]
     Dosage: 1500 MILLIGRAM
     Route: 048
     Dates: end: 20110208
  11. ITORAT [Concomitant]
     Indication: PROPHYLAXIS
     Dosage: 200 MILLIGRAM
     Route: 048
     Dates: start: 20101129, end: 20110208
  12. ALLOPURINOL [Concomitant]
     Indication: PROPHYLAXIS
     Dosage: 50 MILLIGRAM
     Route: 048
     Dates: end: 20110208
  13. REVLIMID [Suspect]
     Indication: REFRACTORY CANCER
  14. LANSOPRAZOLE [Concomitant]
     Indication: PROPHYLAXIS
     Dosage: 15 MILLIGRAM
     Route: 048
     Dates: end: 20110208
  15. PURSENNID [Concomitant]
     Dosage: 24 MILLIGRAM
     Route: 048
     Dates: end: 20110208

REACTIONS (3)
  - THROMBOCYTOPENIA [None]
  - FEBRILE NEUTROPENIA [None]
  - SHOCK HAEMORRHAGIC [None]
